FAERS Safety Report 8354682-2 (Version None)
Quarter: 2012Q2

REPORT INFORMATION
  Report Type: 
  Country: None (occurrence: None)
  Receive Date: 20120511
  Receipt Date: 20110309
  Transmission Date: 20120825
  Serious: No
  Sender: FDA-Public Use
  Company Number: US-TEVA-2011001094

PATIENT
  Sex: Male
  Weight: 88.53 kg

DRUGS (2)
  1. ULTRATAB [Concomitant]
  2. NUVIGIL [Suspect]
     Indication: SLEEP APNOEA SYNDROME
     Dosage: 50 MILLIGRAM;
     Route: 048
     Dates: start: 20110227

REACTIONS (1)
  - LOGORRHOEA [None]
